FAERS Safety Report 9012828 (Version 1)
Quarter: 2013Q1

REPORT INFORMATION
  Report Type: Report from Study
  Country: GB (occurrence: GB)
  Receive Date: 20130114
  Receipt Date: 20130114
  Transmission Date: 20140127
  Serious: Yes (Hospitalization)
  Sender: FDA-Public Use
  Company Number: GB-AMGEN-GBRCT2013002279

PATIENT
  Age: 43 Year
  Sex: Male
  Weight: 89.9 kg

DRUGS (2)
  1. ETANERCEPT [Suspect]
     Indication: PRODUCT USED FOR UNKNOWN INDICATION
     Dosage: 50 MG, 2 TIMES/WK
     Dates: start: 20110609
  2. CALCICHEW-D3 [Concomitant]
     Dosage: UNK
     Dates: start: 20121122

REACTIONS (1)
  - Cellulitis [Recovered/Resolved]
